FAERS Safety Report 7903517-8 (Version None)
Quarter: 2011Q4

REPORT INFORMATION
  Report Type: 
  Country: None (occurrence: None)
  Receive Date: 20111107
  Receipt Date: 20111025
  Transmission Date: 20120403
  Serious: Yes (Other)
  Sender: FDA-Public Use
  Company Number: ADR-2011-11284

PATIENT
  Age: 22 Year
  Sex: Male

DRUGS (2)
  1. LIORESAL [Suspect]
     Indication: MUSCLE SPASTICITY
     Dosage: 125. MCG, DAILY, INTRATHECAL
     Route: 037
  2. LIORESAL [Suspect]
     Indication: CEREBRAL PALSY
     Dosage: 125. MCG, DAILY, INTRATHECAL
     Route: 037

REACTIONS (4)
  - HYPERTONIA [None]
  - CLONUS [None]
  - DEVICE BATTERY ISSUE [None]
  - WITHDRAWAL SYNDROME [None]
